FAERS Safety Report 7722218-2 (Version None)
Quarter: 2011Q3

REPORT INFORMATION
  Report Type: 
  Country: None (occurrence: None)
  Receive Date: 20110831
  Receipt Date: 20110824
  Transmission Date: 20111222
  Serious: Yes (Death, Other)
  Sender: FDA-Public Use
  Company Number: BR-PFIZER INC-2010172263

PATIENT
  Age: 87 Year
  Sex: Male

DRUGS (8)
  1. LYRICA [Suspect]
     Indication: BACK PAIN
     Dosage: 37.5 MG, 1X/DAY
     Route: 048
     Dates: start: 20101201
  2. LYRICA [Suspect]
     Dosage: 150 MG, 1X/DAY, AT NIGHT
     Route: 048
     Dates: start: 20101211
  3. CARDIZEM [Concomitant]
     Dosage: UNK
  4. LYRICA [Suspect]
     Dosage: 75 MG, 1X/DAY
     Route: 048
     Dates: start: 20100101
  5. VALSARTAN [Concomitant]
     Dosage: UNK
  6. SOMALGIN [Concomitant]
     Dosage: UNK
  7. LIPITOR [Suspect]
     Indication: BLOOD CHOLESTEROL
     Dosage: 40 MG, 1X/DAY
     Route: 048
     Dates: start: 20110101
  8. DEPAKOTE [Concomitant]
     Indication: SYNCOPE
     Dosage: 250 MG, 2X/DAY

REACTIONS (7)
  - BACK PAIN [None]
  - CARDIAC ARREST [None]
  - DEPRESSED MOOD [None]
  - SOMNOLENCE [None]
  - PAIN IN EXTREMITY [None]
  - DRUG PRESCRIBING ERROR [None]
  - PNEUMONIA [None]
